FAERS Safety Report 10688509 (Version 3)
Quarter: 2015Q3

REPORT INFORMATION
  Report Type: Spontaneous
  Country: US (occurrence: US)
  Receive Date: 20150102
  Receipt Date: 20150828
  Transmission Date: 20151125
  Serious: Yes (Death, Hospitalization, Other)
  Sender: FDA-Public Use
  Company Number: US-MERCK-1501USA000138

PATIENT
  Sex: Female
  Weight: 89.34 kg

DRUGS (2)
  1. JANUVIA [Suspect]
     Active Substance: SITAGLIPTIN PHOSPHATE
     Indication: TYPE 2 DIABETES MELLITUS
     Dosage: 100 MG, QD
     Route: 048
     Dates: start: 20080804, end: 20121226
  2. JANUVIA [Suspect]
     Active Substance: SITAGLIPTIN PHOSPHATE
     Dosage: 50 MG, QD
     Route: 048
     Dates: start: 20080804, end: 20121226

REACTIONS (21)
  - Cholecystectomy [Unknown]
  - Abdominal pain upper [Unknown]
  - Anaemia [Unknown]
  - Wrong technique in product usage process [Unknown]
  - Osteoarthritis [Unknown]
  - Hypertension [Unknown]
  - Dyspnoea exertional [Unknown]
  - Acute kidney injury [Fatal]
  - Oedema peripheral [Unknown]
  - Type 2 diabetes mellitus [Fatal]
  - Musculoskeletal pain [Unknown]
  - Pancreatitis [Unknown]
  - Fatigue [Unknown]
  - Dyspepsia [Unknown]
  - Dysphagia [Not Recovered/Not Resolved]
  - Eye operation [Unknown]
  - Asthenia [Unknown]
  - Blood glucose increased [Unknown]
  - Cardio-respiratory arrest [Fatal]
  - Glaucoma [Unknown]
  - Pancreatic neuroendocrine tumour metastatic [Fatal]

NARRATIVE: CASE EVENT DATE: 20080804
